FAERS Safety Report 12508423 (Version 3)
Quarter: 2016Q3

REPORT INFORMATION
  Report Type: Spontaneous
  Country: GB (occurrence: GB)
  Receive Date: 20160629
  Receipt Date: 20160728
  Transmission Date: 20161109
  Serious: Yes (Other)
  Sender: FDA-Public Use
  Company Number: GB-PFIZER INC-2016313458

PATIENT
  Age: 41 Year
  Sex: Female

DRUGS (7)
  1. LOPERAMIDE [Suspect]
     Active Substance: LOPERAMIDE
     Dosage: UNK
  2. DOXYCYCLINE MONOHYDRATE [Suspect]
     Active Substance: DOXYCYCLINE
     Indication: ACNE
     Dosage: UNK
     Route: 065
     Dates: start: 20160324
  3. METOCLOPRAMIDE. [Suspect]
     Active Substance: METOCLOPRAMIDE
     Dosage: UNK
  4. HERCEPTIN [Suspect]
     Active Substance: TRASTUZUMAB
     Dosage: UNK
     Route: 058
  5. CAPECITABINE. [Suspect]
     Active Substance: CAPECITABINE
     Dosage: UNK
     Route: 058
  6. CLEXANE [Suspect]
     Active Substance: ENOXAPARIN SODIUM
     Dosage: UNK
     Route: 058
  7. TYVERB [Suspect]
     Active Substance: LAPATINIB
     Dosage: UNK
     Route: 065

REACTIONS (24)
  - Speech disorder [Unknown]
  - Malaise [Unknown]
  - Muscle spasms [Unknown]
  - Contusion [Unknown]
  - Fatigue [Unknown]
  - Oropharyngeal pain [Unknown]
  - Acne [Unknown]
  - Pruritus [Unknown]
  - Onychalgia [Unknown]
  - Eating disorder [Unknown]
  - Vomiting [Unknown]
  - Insomnia [Unknown]
  - Diarrhoea [Unknown]
  - Pain in extremity [Unknown]
  - Dyspnoea [Unknown]
  - Abasia [Unknown]
  - Anxiety [Unknown]
  - Plantar erythema [Unknown]
  - Depression [Unknown]
  - Headache [Unknown]
  - Condition aggravated [Unknown]
  - Inflammatory pain [Unknown]
  - Peripheral swelling [Unknown]
  - Gastritis [Unknown]

NARRATIVE: CASE EVENT DATE: 20160407
